FAERS Safety Report 6491545-1 (Version None)
Quarter: 2009Q4

REPORT INFORMATION
  Report Type: 
  Country: None (occurrence: None)
  Receive Date: 20091211
  Receipt Date: 20091203
  Transmission Date: 20100525
  Serious: Yes (Other)
  Sender: FDA-Public Use
  Company Number: ZA-JNJCH-2009031415

PATIENT
  Sex: Male

DRUGS (2)
  1. VISINE EYE DROPS [Suspect]
     Indication: EYE IRRITATION
     Dosage: TEXT:ONE DROP IN EACH EYE ONCE
     Route: 047
     Dates: start: 20091201, end: 20091201
  2. NAPHAZOLINE NITRATE [Concomitant]
     Indication: EYE IRRITATION
     Dosage: TEXT:UNKNOWN
     Route: 065

REACTIONS (4)
  - EXPIRED DRUG ADMINISTERED [None]
  - PRODUCT QUALITY ISSUE [None]
  - VISION BLURRED [None]
  - VISUAL IMPAIRMENT [None]
